FAERS Safety Report 19642764 (Version 2)
Quarter: 2022Q2

REPORT INFORMATION
  Report Type: Spontaneous
  Country: US (occurrence: US)
  Receive Date: 20210730
  Receipt Date: 20220623
  Transmission Date: 20220721
  Serious: Yes (Other)
  Sender: FDA-Public Use
  Company Number: US-PFIZER INC-202100928269

PATIENT
  Age: 57 Year
  Sex: Female
  Weight: 46.72 kg

DRUGS (3)
  1. NEURONTIN [Suspect]
     Active Substance: GABAPENTIN
     Indication: Epilepsy
     Dosage: UNK, 3X/DAY (6.5, AND KEPT GOING BACK TO 5.5 TO 10)
     Dates: start: 202004, end: 202010
  2. NEURONTIN [Suspect]
     Active Substance: GABAPENTIN
     Indication: Seizure
     Dosage: 6.5 IN THE MORNING, 6.6 IN THE AFTERNOON, AND 10 IN THE EVENING
     Dates: start: 201911
  3. DIVALPROEX SODIUM [Concomitant]
     Active Substance: DIVALPROEX SODIUM
     Indication: Seizure
     Dosage: UNK

REACTIONS (7)
  - Lyme disease [Unknown]
  - Choking [Unknown]
  - Gingival pain [Unknown]
  - Feeding disorder [Unknown]
  - Weight decreased [Unknown]
  - Drug level increased [Unknown]
  - Intentional product misuse [Recovered/Resolved]

NARRATIVE: CASE EVENT DATE: 20200401
